FAERS Safety Report 5985279-7 (Version None)
Quarter: 2008Q4

REPORT INFORMATION
  Report Type: 
  Country: None (occurrence: None)
  Receive Date: 20081203
  Receipt Date: 20081121
  Transmission Date: 20090506
  Serious: Yes (Death, Hospitalization)
  Sender: FDA-Public Use
  Company Number: DEP_00178_2008

PATIENT
  Age: 30 Year
  Sex: Male

DRUGS (2)
  1. CIPROFLOXACIN [Suspect]
     Indication: OFF LABEL USE
     Dosage: (1 G QD ORAL)
     Route: 048
  2. CIPROFLOXACIN [Suspect]
     Indication: URINARY TRACT INFECTION
     Dosage: (1 G QD ORAL)
     Route: 048

REACTIONS (14)
  - ABDOMINAL PAIN [None]
  - BUNDLE BRANCH BLOCK RIGHT [None]
  - CARDIAC FAILURE ACUTE [None]
  - CHILLS [None]
  - COLD SWEAT [None]
  - CONFUSIONAL STATE [None]
  - DEHYDRATION [None]
  - HAEMOLYSIS [None]
  - HAEMORRHAGE [None]
  - MYOCARDIAL HAEMORRHAGE [None]
  - NAUSEA [None]
  - PULMONARY OEDEMA [None]
  - THROMBOTIC THROMBOCYTOPENIC PURPURA [None]
  - VOMITING [None]
